FAERS Safety Report 15289514 (Version 1)
Quarter: 2018Q3

REPORT INFORMATION
  Report Type: Other
  Country: DE (occurrence: DE)
  Receive Date: 20180817
  Receipt Date: 20180817
  Transmission Date: 20181010
  Serious: Yes (Congenital Anomaly)
  Sender: FDA-Public Use
  Company Number: DE-ARALEZ PHARMACEUTICALS R+D INC.-2018-ARA-002025

PATIENT
  Sex: Male
  Weight: .35 kg

DRUGS (10)
  1. CANDESARTAN. [Suspect]
     Active Substance: CANDESARTAN
     Indication: HYPERTENSION
     Dosage: 32 MG, QD
     Route: 064
  2. NEPRESSOL (DIHYDRALAZINE SULFATE) [Suspect]
     Active Substance: DIHYDRALAZINE SULFATE
     Indication: HYPERTENSION
     Dosage: 50 MG, QD
     Route: 064
     Dates: start: 20171209, end: 20180504
  3. TORASEMIDE [Concomitant]
     Active Substance: TORSEMIDE
     Indication: HYPERTENSION
     Dosage: UNK
     Route: 064
  4. LAMOTRIGINE. [Suspect]
     Active Substance: LAMOTRIGINE
     Dosage: 50 TO 100 MG/D
     Route: 064
  5. METOPROLOL SUCCINATE. [Suspect]
     Active Substance: METOPROLOL SUCCINATE
     Indication: HYPERTENSION
     Dosage: 190 MG/D/ INITIA 2 X 95 MG/D, THEN DOSAGE DECREASE TO 2 X 47.5 MG/D
     Route: 064
     Dates: start: 20171209, end: 20180504
  6. LAMOTRIGINE. [Suspect]
     Active Substance: LAMOTRIGINE
     Indication: EPILEPSY
     Dosage: 100 MG, QD
     Route: 064
     Dates: start: 20171209, end: 20180504
  7. MIFEGYNE [Concomitant]
     Active Substance: MIFEPRISTONE
     Indication: ABORTION INDUCED
     Dosage: UNK
     Route: 064
     Dates: start: 20180502, end: 20180503
  8. DORZOLAMIDE [Concomitant]
     Active Substance: DORZOLAMIDE
     Indication: GLAUCOMA
     Dosage: UNK
     Route: 064
  9. CERGEM [Concomitant]
     Active Substance: GEMEPROST
     Indication: ABORTION INDUCED
     Dosage: UNK
     Route: 064
     Dates: start: 20180502, end: 20180503
  10. PANTOPRAZOLE SODIUM. [Suspect]
     Active Substance: PANTOPRAZOLE SODIUM
     Indication: GASTRITIS PROPHYLAXIS
     Dosage: 40 MG, QD
     Route: 064

REACTIONS (7)
  - Congenital vas deferens absence [Not Recovered/Not Resolved]
  - Joint contracture [Not Recovered/Not Resolved]
  - Pulmonary hypoplasia [Not Recovered/Not Resolved]
  - Single umbilical artery [Not Recovered/Not Resolved]
  - Congenital muscle absence [Not Recovered/Not Resolved]
  - Potter^s syndrome [Not Recovered/Not Resolved]
  - Maternal drugs affecting foetus [None]
